FAERS Safety Report 14445237 (Version 2)
Quarter: 2018Q3

REPORT INFORMATION
  Report Type: Spontaneous
  Country: JP (occurrence: JP)
  Receive Date: 20180126
  Receipt Date: 20180926
  Transmission Date: 20181010
  Serious: Yes (Other)
  Sender: FDA-Public Use
  Company Number: JP-ACTELION-A-CH2018-166134

PATIENT
  Age: 30 Year
  Sex: Male

DRUGS (6)
  1. AZOSEMIDE [Concomitant]
     Active Substance: AZOSEMIDE
  2. OPSUMIT [Suspect]
     Active Substance: MACITENTAN
     Indication: PULMONARY ARTERIAL HYPERTENSION
     Dosage: 10 MG, OD
     Route: 048
     Dates: start: 20171206
  3. EPLERENONE. [Concomitant]
     Active Substance: EPLERENONE
  4. TOLVAPTAN [Concomitant]
     Active Substance: TOLVAPTAN
  5. EPOPROSTENOL ACT [Suspect]
     Active Substance: EPOPROSTENOL
     Indication: PULMONARY ARTERIAL HYPERTENSION
     Dosage: 28.8 NG/KG, PER MIN
     Route: 042
     Dates: start: 20171214
  6. RIOCIGUAT. [Suspect]
     Active Substance: RIOCIGUAT
     Indication: PRODUCT USED FOR UNKNOWN INDICATION
     Dosage: 0.5 MG, TID
     Route: 048
     Dates: start: 20171211

REACTIONS (2)
  - Organising pneumonia [Unknown]
  - Pulmonary alveolar haemorrhage [Unknown]

NARRATIVE: CASE EVENT DATE: 20180111
